FAERS Safety Report 17459842 (Version 3)
Quarter: 2021Q3

REPORT INFORMATION
  Report Type: Report from Study
  Country: AU (occurrence: AU)
  Receive Date: 20200225
  Receipt Date: 20210909
  Transmission Date: 20211014
  Serious: Yes (Disabling)
  Sender: FDA-Public Use
  Company Number: AU-EXELIXIS-CABO-20027113

PATIENT
  Age: 62 Year
  Sex: Male
  Weight: 90 kg

DRUGS (5)
  1. CABOMETYX [Suspect]
     Active Substance: CABOZANTINIB S-MALATE
     Dosage: 40 MG, QOD
     Route: 048
     Dates: start: 20210202
  2. CABOMETYX [Suspect]
     Active Substance: CABOZANTINIB S-MALATE
     Dosage: 20 MG, QD
     Route: 048
     Dates: start: 20201208
  3. CABOMETYX [Suspect]
     Active Substance: CABOZANTINIB S-MALATE
     Indication: METASTATIC RENAL CELL CARCINOMA
     Dosage: 60 MG, QD
     Route: 048
     Dates: start: 20200128, end: 20200207
  4. CABOMETYX [Suspect]
     Active Substance: CABOZANTINIB S-MALATE
     Indication: METASTASES TO LIVER
     Dosage: 40 MG, QD
     Route: 048
     Dates: start: 20200327
  5. CABOMETYX [Suspect]
     Active Substance: CABOZANTINIB S-MALATE
     Indication: METASTASES TO LUNG
     Dosage: 60 MG, QOD
     Route: 048

REACTIONS (6)
  - Stomatitis [Unknown]
  - Off label use [Unknown]
  - Fatigue [Unknown]
  - Asthenia [Recovering/Resolving]
  - Inappropriate schedule of product administration [Unknown]
  - Lethargy [Recovering/Resolving]

NARRATIVE: CASE EVENT DATE: 20200207
